FAERS Safety Report 5363704-2 (Version None)
Quarter: 2007Q2

REPORT INFORMATION
  Report Type: 
  Country: None (occurrence: None)
  Receive Date: 20070618
  Receipt Date: 20070618
  Transmission Date: 20071010
  Serious: Yes (Death)
  Sender: FDA-Public Use
  Company Number: None

PATIENT
  Age: 49 Year
  Sex: Male
  Weight: 59.8748 kg

DRUGS (1)
  1. PRIMAXIN [Suspect]
     Dosage: 500 MG Q12H IV
     Route: 042
     Dates: start: 20070603, end: 20070603

REACTIONS (4)
  - CARDIO-RESPIRATORY ARREST [None]
  - DYSPNOEA [None]
  - REFUSAL OF TREATMENT BY RELATIVE [None]
  - VISION BLURRED [None]
